FAERS Safety Report 12877003 (Version 3)
Quarter: 2016Q4

REPORT INFORMATION
  Report Type: Spontaneous
  Country: RO (occurrence: RO)
  Receive Date: 20161024
  Receipt Date: 20161130
  Transmission Date: 20170207
  Serious: Yes (Hospitalization, Other)
  Sender: FDA-Public Use
  Company Number: RO-INCYTE CORPORATION-2016IN006586

PATIENT
  Age: 76 Year
  Sex: Male
  Weight: 84 kg

DRUGS (1)
  1. JAKAVI [Suspect]
     Active Substance: RUXOLITINIB
     Indication: MYELOFIBROSIS
     Dosage: 20 MG, BID
     Route: 048
     Dates: start: 20140805

REACTIONS (9)
  - Pain [Unknown]
  - Onychomycosis [Unknown]
  - Hyperuricaemia [Unknown]
  - Tuberculosis [Not Recovered/Not Resolved]
  - Skin lesion [Unknown]
  - Nodule [Unknown]
  - Herpes zoster [Unknown]
  - Erythema [Unknown]
  - Anaemia [Unknown]

NARRATIVE: CASE EVENT DATE: 20160113
